FAERS Safety Report 8459555-2 (Version None)
Quarter: 2012Q2

REPORT INFORMATION
  Report Type: 
  Country: None (occurrence: None)
  Receive Date: 20120622
  Receipt Date: 20120613
  Transmission Date: 20120825
  Serious: Yes (Hospitalization)
  Sender: FDA-Public Use
  Company Number: JP-ASTRAZENECA-2012SE40382

PATIENT
  Sex: Male
  Weight: 2 kg

DRUGS (1)
  1. TENORMIN [Suspect]
     Dosage: NUMBER OF SEPARATE DOSAGES UNKNOWN
     Route: 064

REACTIONS (1)
  - NEONATAL RESPIRATORY DISTRESS SYNDROME [None]
